FAERS Safety Report 5207017-8 (Version None)
Quarter: 2007Q1

REPORT INFORMATION
  Report Type: 
  Country: None (occurrence: None)
  Receive Date: 20070112
  Receipt Date: 20070102
  Transmission Date: 20070707
  Serious: Yes (Hospitalization)
  Sender: FDA-Public Use
  Company Number: PHRM2007FR00446

PATIENT
  Age: 77 Year
  Sex: Female

DRUGS (4)
  1. FOSAVANCE [Concomitant]
  2. STOMATOLOGICALS, MOUTH PREPARATIONS [Suspect]
  3. ZOMETA [Suspect]
     Indication: METASTASES TO BONE
     Dosage: 45 COURSES
     Route: 042
     Dates: start: 20030826, end: 20050524
  4. FASLODEX [Concomitant]

REACTIONS (4)
  - BONE DISORDER [None]
  - BONE PAIN [None]
  - OSTEONECROSIS [None]
  - TOOTH EXTRACTION [None]
